FAERS Safety Report 6044903-3 (Version None)
Quarter: 2009Q1

REPORT INFORMATION
  Report Type: 
  Country: None (occurrence: None)
  Receive Date: 20090121
  Receipt Date: 20081217
  Transmission Date: 20090719
  Serious: Yes (Other)
  Sender: FDA-Public Use
  Company Number: US-PFIZER INC-2008051192

PATIENT
  Sex: Male

DRUGS (22)
  1. XANAX [Suspect]
     Indication: DEPRESSION
     Dates: start: 20031001, end: 20070101
  2. XANAX [Suspect]
     Indication: ANXIETY
  3. XANAX [Suspect]
     Indication: SLEEP DISORDER
  4. ZOLOFT [Suspect]
     Indication: DEPRESSION
     Dates: start: 20031001
  5. ZOLOFT [Suspect]
     Indication: ANXIETY
  6. NEURONTIN [Suspect]
     Indication: RESTLESS LEGS SYNDROME
     Dates: start: 20031001
  7. NEURONTIN [Suspect]
     Indication: AMNESIA
  8. TRAZODONE HCL [Suspect]
     Dates: start: 20031001
  9. SEROQUEL [Suspect]
     Indication: DEPRESSION
     Dates: start: 20031001, end: 20070101
  10. WELLBUTRIN [Suspect]
     Indication: DEPRESSION
     Dates: start: 20031001, end: 20070101
  11. LEXAPRO [Suspect]
     Indication: DEPRESSION
     Dates: start: 20031001, end: 20060101
  12. RESTORIL [Suspect]
     Indication: DEPRESSION
     Dates: start: 20031001, end: 20070101
  13. CYMBALTA [Suspect]
     Indication: DEPRESSION
     Dosage: UNK
     Dates: start: 20031001, end: 20070101
  14. EFFEXOR [Suspect]
     Dosage: UNK
     Dates: start: 20031001
  15. LISINOPRIL [Concomitant]
     Indication: BLOOD PRESSURE
  16. FENOFIBRATE [Concomitant]
     Indication: BLOOD TRIGLYCERIDES
  17. FENOFIBRATE [Concomitant]
     Indication: BLOOD CHOLESTEROL
  18. LEVOTHYROXINE [Concomitant]
     Indication: THYROID DISORDER
  19. AMBIEN [Concomitant]
     Indication: SLEEP DISORDER
  20. HYDROCHLOROTHIAZIDE [Concomitant]
  21. HYDROCODONE BITARTRATE + ACETAMINOPHEN [Concomitant]
     Indication: BACK PAIN
  22. CARISOPRODOL [Concomitant]
     Indication: BACK PAIN

REACTIONS (23)
  - AMNESIA [None]
  - ASBESTOSIS [None]
  - BLOOD CHOLESTEROL INCREASED [None]
  - BLOOD TRIGLYCERIDES ABNORMAL [None]
  - CONVULSION [None]
  - DEPRESSION [None]
  - HALLUCINATION [None]
  - HYPERHIDROSIS [None]
  - HYPERTENSION [None]
  - HYPOTHYROIDISM [None]
  - PAIN [None]
  - PANCREATITIS [None]
  - PANIC ATTACK [None]
  - PARANOIA [None]
  - PYREXIA [None]
  - RENAL FAILURE [None]
  - ROAD TRAFFIC ACCIDENT [None]
  - SLEEP APNOEA SYNDROME [None]
  - SUICIDE ATTEMPT [None]
  - TACHYCARDIA [None]
  - TARDIVE DYSKINESIA [None]
  - URINARY INCONTINENCE [None]
  - WITHDRAWAL SYNDROME [None]
